FAERS Safety Report 5700067-4 (Version None)
Quarter: 2008Q2

REPORT INFORMATION
  Report Type: 
  Country: None (occurrence: None)
  Receive Date: 20080410
  Receipt Date: 20080331
  Transmission Date: 20081010
  Serious: Yes (Hospitalization)
  Sender: FDA-Public Use
  Company Number: AU-PURDUE-USA_2008_0032205

PATIENT
  Age: 59 Year
  Sex: Female

DRUGS (5)
  1. OXYCONTIN [Suspect]
     Indication: PAIN
     Dosage: 160 MG, DAILY
     Route: 048
     Dates: start: 20070115
  2. PAROXETINE HCL [Concomitant]
     Indication: DEPRESSION
     Dosage: UNK, UNK
     Route: 048
     Dates: end: 20080111
  3. PENICILLIN [Concomitant]
     Indication: ACUTE TONSILLITIS
     Dosage: UNK, UNK
     Dates: start: 20080108, end: 20080111
  4. AMITRIPTYLINE HYDROCHLORIDE [Concomitant]
     Indication: SLEEP DISORDER
     Dosage: UNK MG, UNK
     Route: 048
  5. ENDONE [Concomitant]
     Indication: PAIN
     Dosage: UNK MG, UNK
     Route: 048
     Dates: start: 20051015, end: 20070115

REACTIONS (5)
  - AGITATION [None]
  - DELIRIUM [None]
  - DISORIENTATION [None]
  - FEELING HOT [None]
  - SEROTONIN SYNDROME [None]
